FAERS Safety Report 6126887-2 (Version None)
Quarter: 2009Q1

REPORT INFORMATION
  Report Type: 
  Country: None (occurrence: None)
  Receive Date: 20090320
  Receipt Date: 20080827
  Transmission Date: 20090719
  Serious: No
  Sender: FDA-Public Use
  Company Number: US-ABBOTT-08P-163-0472703-00

PATIENT
  Sex: Female

DRUGS (1)
  1. ERYTHROMYCIN [Suspect]
     Indication: INFECTION
     Route: 048
     Dates: start: 19780101, end: 19780101

REACTIONS (1)
  - NAUSEA [None]
